FAERS Safety Report 24885579 (Version 1)
Quarter: 2025Q1

REPORT INFORMATION
  Report Type: Spontaneous
  Country: DE (occurrence: DE)
  Receive Date: 20250125
  Receipt Date: 20250125
  Transmission Date: 20250409
  Serious: Yes (Hospitalization, Other)
  Sender: CELLTRION
  Company Number: DE-ABBVIE-5843941

PATIENT

DRUGS (7)
  1. ADALIMUMAB [Suspect]
     Active Substance: ADALIMUMAB
     Indication: Crohn^s disease
     Dosage: 40 MG, EVERY 2 WEEK
     Route: 058
     Dates: start: 201707
  2. USTEKINUMAB [Suspect]
     Active Substance: USTEKINUMAB
     Indication: Crohn^s disease
     Route: 065
  3. INFLIXIMAB [Suspect]
     Active Substance: INFLIXIMAB
     Indication: Crohn^s disease
     Dates: start: 201603, end: 201609
  4. MEROPENEM [Concomitant]
     Active Substance: MEROPENEM
     Indication: Antibiotic therapy
  5. AZATHIOPRINE [Concomitant]
     Active Substance: AZATHIOPRINE
     Indication: Crohn^s disease
  6. CLINDAMYCIN PHOSPHATE [Concomitant]
     Active Substance: CLINDAMYCIN PHOSPHATE
     Indication: Antibiotic therapy
  7. CEFTRIAXONE SODIUM [Concomitant]
     Active Substance: CEFTRIAXONE SODIUM
     Indication: Antibiotic therapy

REACTIONS (16)
  - Paralysis [Unknown]
  - Vision blurred [Recovered/Resolved]
  - Sigmoid sinus thrombosis [Unknown]
  - Transverse sinus thrombosis [Unknown]
  - Papilloedema [Unknown]
  - Pyoderma gangrenosum [Unknown]
  - Impaired healing [Unknown]
  - Sepsis [Unknown]
  - Headache [Unknown]
  - Mastoiditis [Unknown]
  - Otitis media chronic [Unknown]
  - Monoparesis [Unknown]
  - Pain [Unknown]
  - Staphylococcal infection [Unknown]
  - Staphylococcal infection [Unknown]
  - Psoriasis [Unknown]

NARRATIVE: CASE EVENT DATE: 20220101
